FAERS Safety Report 8543009-9 (Version None)
Quarter: 2012Q3

REPORT INFORMATION
  Report Type: 
  Country: None (occurrence: None)
  Receive Date: 20120727
  Receipt Date: 20120717
  Transmission Date: 20120928
  Serious: Yes (Other)
  Sender: FDA-Public Use
  Company Number: US-JNJFOC-20120710245

PATIENT
  Sex: Female
  Weight: 80.74 kg

DRUGS (9)
  1. LISINOPRIL [Concomitant]
     Indication: HYPERTENSION
     Dosage: 20-12.5 MG/ 3XWEEK
     Route: 048
     Dates: start: 19820101
  2. DURAGESIC-100 [Suspect]
     Indication: ARTHRITIS
     Route: 062
     Dates: start: 19940101, end: 20060101
  3. FENTANYL-100 [Suspect]
     Route: 062
     Dates: start: 20090101
  4. FENTANYL-100 [Suspect]
     Route: 062
     Dates: start: 20090101
  5. FENTANYL-100 [Suspect]
     Route: 062
     Dates: start: 20080101, end: 20090101
  6. FENTANYL-100 [Suspect]
     Route: 062
     Dates: start: 20060101, end: 20080101
  7. FENTANYL-100 [Suspect]
     Indication: ARTHRITIS
     Route: 062
     Dates: start: 20080101, end: 20090101
  8. DURAGESIC-100 [Suspect]
     Indication: FIBROMYALGIA
     Route: 062
     Dates: start: 19940101, end: 20060101
  9. FENTANYL-100 [Suspect]
     Indication: FIBROMYALGIA
     Route: 062
     Dates: start: 20060101, end: 20080101

REACTIONS (6)
  - WRONG TECHNIQUE IN DRUG USAGE PROCESS [None]
  - DIABETES MELLITUS [None]
  - ARTHRITIS [None]
  - PRODUCT QUALITY ISSUE [None]
  - POOR QUALITY DRUG ADMINISTERED [None]
  - WEIGHT DECREASED [None]
